FAERS Safety Report 10472523 (Version 1)
Quarter: 2014Q3

REPORT INFORMATION
  Report Type: Spontaneous
  Country: US (occurrence: None)
  Receive Date: 20140923
  Receipt Date: 20140923
  Transmission Date: 20150326
  Serious: Yes (Disabling)
  Sender: FDA-Public Use
  Company Number: None

PATIENT
  Age: 71 Year
  Sex: Female
  Weight: 77.11 kg

DRUGS (1)
  1. LEVOFLAXIN 750 MG [Suspect]
     Active Substance: LEVOFLOXACIN
     Indication: URINARY TRACT INFECTION
     Dosage: 1 PILL PER DAY ONCE DAILY TAKEN BY MOUTH
     Route: 048
     Dates: start: 20140818, end: 20140828

REACTIONS (6)
  - Musculoskeletal pain [None]
  - Insomnia [None]
  - Arthralgia [None]
  - Activities of daily living impaired [None]
  - Pain [None]
  - Joint stiffness [None]

NARRATIVE: CASE EVENT DATE: 20140819
